FAERS Safety Report 10566551 (Version 2)
Quarter: 2014Q4

REPORT INFORMATION
  Report Type: Spontaneous
  Country: US (occurrence: US)
  Receive Date: 20141105
  Receipt Date: 20141201
  Transmission Date: 20150529
  Serious: Yes (Other)
  Sender: FDA-Public Use
  Company Number: US-PFIZER INC-2014299355

PATIENT
  Age: 36 Year
  Sex: Male
  Weight: 95 kg

DRUGS (4)
  1. EFFEXOR [Suspect]
     Active Substance: VENLAFAXINE HYDROCHLORIDE
     Indication: DEPRESSION
     Dosage: 75 MG (TWO - 37.5 MG TABLETS) 2X/DAY, IN THE MORNING AND AT NIGHT)
     Route: 048
     Dates: start: 201408, end: 20141023
  2. EFFEXOR [Suspect]
     Active Substance: VENLAFAXINE HYDROCHLORIDE
     Indication: ANXIETY
  3. EFFEXOR XR [Suspect]
     Active Substance: VENLAFAXINE HYDROCHLORIDE
     Indication: HEADACHE
     Dosage: 150 MG, DAILY
     Route: 048
     Dates: start: 201405
  4. EFFEXOR XR [Suspect]
     Active Substance: VENLAFAXINE HYDROCHLORIDE
     Indication: AFFECTIVE DISORDER

REACTIONS (13)
  - Fear [Unknown]
  - Anxiety [Unknown]
  - Memory impairment [Unknown]
  - Visual impairment [Unknown]
  - Irritability [Unknown]
  - Dyspnoea [Unknown]
  - Tremor [Unknown]
  - Condition aggravated [Unknown]
  - Weight decreased [Unknown]
  - Balance disorder [Unknown]
  - Hyperhidrosis [Unknown]
  - Drug withdrawal syndrome [Recovered/Resolved]
  - Dizziness [Unknown]

NARRATIVE: CASE EVENT DATE: 2014
